APPROVED DRUG PRODUCT: SILDENAFIL CITRATE
Active Ingredient: SILDENAFIL CITRATE
Strength: EQ 25MG BASE
Dosage Form/Route: TABLET;ORAL
Application: A209302 | Product #003 | TE Code: AB
Applicant: UMEDICA LABORATORIES PRIVATE LTD
Approved: Jun 15, 2021 | RLD: No | RS: No | Type: RX